FAERS Safety Report 4463904-X (Version None)
Quarter: 2004Q3

REPORT INFORMATION
  Report Type: 
  Country: None (occurrence: None)
  Receive Date: 20040929
  Receipt Date: 20040913
  Transmission Date: 20050211
  Serious: Yes (Congenital Anomaly)
  Sender: FDA-Public Use
  Company Number: GB-JNJFOC-20040907541

PATIENT

DRUGS (1)
  1. MEBENDAZOLE [Suspect]
     Dosage: INTRA-UTERNINE
     Route: 015

REACTIONS (3)
  - CONGENITAL VENTRICULAR SEPTAL DEFECT [None]
  - DRUG EXPOSURE DURING PREGNANCY [None]
  - PULMONARY ARTERY ATRESIA [None]
